FAERS Safety Report 14456066 (Version 4)
Quarter: 2019Q3

REPORT INFORMATION
  Report Type: Report from Study
  Country: JP (occurrence: JP)
  Receive Date: 20180130
  Receipt Date: 20190905
  Transmission Date: 20191004
  Serious: Yes (Other)
  Sender: FDA-Public Use
  Company Number: JP-ALXN-A201800246AA

PATIENT

DRUGS (2)
  1. SOLIRIS [Suspect]
     Active Substance: ECULIZUMAB
     Indication: PAROXYSMAL NOCTURNAL HAEMOGLOBINURIA
     Dosage: UNK
     Route: 042
     Dates: start: 201204
  2. SOLIRIS [Suspect]
     Active Substance: ECULIZUMAB
     Dosage: 900 MG, Q2W
     Route: 042
     Dates: start: 20120705

REACTIONS (4)
  - Aortic valve calcification [Recovered/Resolved]
  - Inappropriate schedule of product administration [Unknown]
  - Surgery [Unknown]
  - Extracorporeal circulation [Unknown]

NARRATIVE: CASE EVENT DATE: 20180104
